FAERS Safety Report 24264428 (Version 1)
Quarter: 2024Q3

REPORT INFORMATION
  Report Type: Spontaneous
  Country: NL (occurrence: NL)
  Receive Date: 20240829
  Receipt Date: 20240829
  Transmission Date: 20241017
  Serious: Yes (Other)
  Sender: ASTELLAS
  Company Number: None

PATIENT
  Age: 82 Year
  Sex: Female
  Weight: 70 kg

DRUGS (7)
  1. SOLIFENACIN [Suspect]
     Active Substance: SOLIFENACIN
     Indication: Urinary incontinence
     Dosage: THE INDICATED DOSE IS/WAS PER DAY INITIALLY 10 MG
     Route: 065
     Dates: start: 20210301
  2. SOLIFENACIN [Suspect]
     Active Substance: SOLIFENACIN
     Dosage: THEREAFTER 5 MG A DAY
     Route: 065
     Dates: start: 20221215, end: 20240301
  3. ESOMEPRAZOLE [Concomitant]
     Active Substance: ESOMEPRAZOLE
     Indication: Product used for unknown indication
     Dosage: GASTRO-RESISTANT CAPSULE 20 MG (MILLIGRAM)
     Route: 065
  4. CITALOPRAM [Concomitant]
     Active Substance: CITALOPRAM\CITALOPRAM HYDROBROMIDE
     Indication: Product used for unknown indication
     Dosage: COATED TABLET 10 MG (MILLIGRAMS)
     Route: 065
  5. NEBIVOLOL [Concomitant]
     Active Substance: NEBIVOLOL
     Indication: Product used for unknown indication
     Dosage: TABLET, 5 MG (MILLIGRAM)
     Route: 065
  6. NITROFURANTOIN [Concomitant]
     Active Substance: NITROFURANTOIN
     Indication: Product used for unknown indication
     Dosage: CAPSULE, 50 MG (MILLIGRAM)
     Route: 065
  7. APIXABAN [Concomitant]
     Active Substance: APIXABAN
     Indication: Product used for unknown indication
     Dosage: 2X PER DAY 2.5 MG TABLET
     Route: 065

REACTIONS (2)
  - Dementia [Recovered/Resolved]
  - Disorientation [Recovered/Resolved]
